FAERS Safety Report 4668717-1 (Version None)
Quarter: 2005Q2

REPORT INFORMATION
  Report Type: 
  Country: None (occurrence: None)
  Receive Date: 20050523
  Receipt Date: 20050214
  Transmission Date: 20051028
  Serious: Yes (Other)
  Sender: FDA-Public Use
  Company Number: PHBS2005US02568

PATIENT
  Age: 72 Year
  Sex: Female

DRUGS (5)
  1. CAPECITABINE [Concomitant]
     Route: 065
  2. TRASTUZUMAB [Concomitant]
     Route: 065
  3. LEVODOPA [Concomitant]
     Route: 065
  4. METOPROLOL [Concomitant]
     Route: 065
  5. ZOLEDRONIC ACID [Suspect]
     Indication: BREAST CANCER METASTATIC
     Route: 042

REACTIONS (15)
  - ACTINOMYCOSIS [None]
  - BONE DEBRIDEMENT [None]
  - BONE DISORDER [None]
  - ERYTHEMA [None]
  - FISTULA [None]
  - GINGIVAL OPERATION [None]
  - IMPAIRED HEALING [None]
  - OEDEMA [None]
  - OSTEOMYELITIS [None]
  - OSTEONECROSIS [None]
  - PARANASAL SINUS HYPERSECRETION [None]
  - SINUS PERFORATION [None]
  - SOFT TISSUE DISORDER [None]
  - TOOTH DISORDER [None]
  - TOOTH EXTRACTION [None]
